FAERS Safety Report 7841908-4 (Version None)
Quarter: 2011Q4

REPORT INFORMATION
  Report Type: 
  Country: None (occurrence: None)
  Receive Date: 20111025
  Receipt Date: 20111018
  Transmission Date: 20120403
  Serious: Yes (Hospitalization)
  Sender: FDA-Public Use
  Company Number: PHEH2011US07379

PATIENT
  Age: 48 Year
  Sex: Female

DRUGS (1)
  1. VIVELLE-DOT [Suspect]
     Indication: HORMONE REPLACEMENT THERAPY
     Dosage: 0.1, TWICE PER WEEK
     Route: 062

REACTIONS (2)
  - SMALL INTESTINAL OBSTRUCTION [None]
  - DEEP VEIN THROMBOSIS [None]
